FAERS Safety Report 15306496 (Version 1)
Quarter: 2018Q3

REPORT INFORMATION
  Report Type: Spontaneous
  Country: US (occurrence: US)
  Receive Date: 20180822
  Receipt Date: 20180822
  Transmission Date: 20181010
  Serious: No
  Sender: FDA-Public Use
  Company Number: US-MYLANLABS-2018M1061960

PATIENT
  Sex: Female
  Weight: 60 kg

DRUGS (1)
  1. XULANE [Suspect]
     Active Substance: ETHINYL ESTRADIOL\NORELGESTROMIN
     Indication: PRODUCT USED FOR UNKNOWN INDICATION
     Dosage: UNK
     Route: 062
     Dates: start: 2015, end: 201803

REACTIONS (4)
  - Hormone level abnormal [Unknown]
  - Progesterone increased [Unknown]
  - Benign hepatic neoplasm [Unknown]
  - Blood oestrogen increased [Unknown]
